FAERS Safety Report 12687226 (Version 1)
Quarter: 2016Q3

REPORT INFORMATION
  Report Type: Spontaneous
  Country: US (occurrence: US)
  Receive Date: 20160826
  Receipt Date: 20160826
  Transmission Date: 20161109
  Serious: No
  Sender: FDA-Public Use
  Company Number: US-009507513-1608USA002055

PATIENT
  Sex: Female

DRUGS (1)
  1. DULERA [Suspect]
     Active Substance: FORMOTEROL FUMARATE DIHYDRATE\MOMETASONE FUROATE
     Dosage: 2 PUFFS TWICE DAILY, ORAL INHALATION
     Route: 055
     Dates: start: 2014

REACTIONS (3)
  - Product quality issue [Unknown]
  - Chest discomfort [Recovered/Resolved]
  - Asthma [Recovered/Resolved]
